FAERS Safety Report 5130618-2 (Version None)
Quarter: 2006Q3

REPORT INFORMATION
  Report Type: 
  Country: None (occurrence: None)
  Receive Date: 20060829
  Receipt Date: 20060509
  Transmission Date: 20061208
  Serious: No
  Sender: FDA-Public Use
  Company Number: PHEH2006US06133

PATIENT
  Age: 71 Year
  Sex: Male

DRUGS (2)
  1. EXJADE [Suspect]
     Indication: BLOOD IRON INCREASED
     Dosage: 2000 MG, QD
     Dates: start: 20060422, end: 20060509
  2. PROGRAF [Concomitant]

REACTIONS (4)
  - DIARRHOEA [None]
  - RASH ERYTHEMATOUS [None]
  - RASH MACULAR [None]
  - RASH PRURITIC [None]
